FAERS Safety Report 24269337 (Version 1)
Quarter: 2024Q3

REPORT INFORMATION
  Report Type: Spontaneous
  Country: US (occurrence: None)
  Receive Date: 20240830
  Receipt Date: 20240830
  Transmission Date: 20241017
  Serious: Yes (unspecified)
  Sender: Public
  Company Number: None

PATIENT
  Age: 59 Year
  Sex: Female

DRUGS (1)
  1. ENBREL [Suspect]
     Active Substance: ETANERCEPT
     Indication: Sacroiliitis
     Dosage: FREQUENCY : WEEKLY;?

REACTIONS (5)
  - Insomnia [None]
  - Illness [None]
  - Malaise [None]
  - Fatigue [None]
  - Depressive symptom [None]
